FAERS Safety Report 10732086 (Version 1)
Quarter: 2015Q1

REPORT INFORMATION
  Report Type: Spontaneous
  Country: US (occurrence: None)
  Receive Date: 20150121
  Receipt Date: 20150121
  Transmission Date: 20150721
  Serious: Yes (Disabling)
  Sender: FDA-Public Use
  Company Number: None

PATIENT
  Age: 43 Year
  Sex: Female
  Weight: 65.77 kg

DRUGS (12)
  1. VICODIN [Concomitant]
     Active Substance: ACETAMINOPHEN\HYDROCODONE BITARTRATE
  2. XANAX [Concomitant]
     Active Substance: ALPRAZOLAM
  3. CORTISONE [Suspect]
     Active Substance: CORTISONE\HYDROCORTISONE
     Indication: INTERVERTEBRAL DISC PROTRUSION
     Dosage: UNKNOWN ONCE INJECTED INTO SPINAL AREA
     Dates: start: 20150113
  4. CELEXA [Concomitant]
     Active Substance: CITALOPRAM HYDROBROMIDE
  5. BETAMETHASONE DIPROPIONATE W/CLOTRIMAZOLE [Concomitant]
     Active Substance: BETAMETHASONE DIPROPIONATE\CLOTRIMAZOLE
  6. FLEXERIL [Concomitant]
     Active Substance: CYCLOBENZAPRINE HYDROCHLORIDE
  7. MOTRIN [Concomitant]
     Active Substance: IBUPROFEN
  8. VITAMIN D [Concomitant]
     Active Substance: CHOLECALCIFEROL
  9. TRAMADOL [Concomitant]
     Active Substance: TRAMADOL
  10. COLACE [Concomitant]
     Active Substance: DOCUSATE SODIUM
  11. MULTIVITAMIN [Concomitant]
     Active Substance: VITAMINS
  12. JUNEL FE 1/20 [Concomitant]
     Active Substance: ETHINYL ESTRADIOL\NORETHINDRONE ACETATE

REACTIONS (2)
  - Headache [None]
  - Hypertension [None]

NARRATIVE: CASE EVENT DATE: 20150113
